FAERS Safety Report 10625081 (Version 1)
Quarter: 2014Q4

REPORT INFORMATION
  Report Type: Spontaneous
  Country: BE (occurrence: None)
  Receive Date: 20141202
  Receipt Date: 20141202
  Transmission Date: 20150529
  Serious: Yes (Life-Threatening, Hospitalization)
  Sender: FDA-Public Use
  Company Number: NSR_01713_2014

PATIENT
  Age: 72 Year
  Sex: Male

DRUGS (9)
  1. ALLOPURINOL (ALLOPURINOL) [Suspect]
     Active Substance: ALLOPURINOL
     Indication: PRODUCT USED FOR UNKNOWN INDICATION
  2. DIGOXIN (DIGOXIN) [Suspect]
     Active Substance: DIGOXIN
     Indication: PRODUCT USED FOR UNKNOWN INDICATION
  3. SIMVASTATIN (SIMVASTATIN) [Suspect]
     Active Substance: SIMVASTATIN
     Indication: PRODUCT USED FOR UNKNOWN INDICATION
     Dosage: 0.2 MG DAILY
  4. NIFURTOINOL [Suspect]
     Active Substance: NIFURTOINOL
     Indication: PRODUCT USED FOR UNKNOWN INDICATION
  5. METFORMIN [Suspect]
     Active Substance: METFORMIN HYDROCHLORIDE
     Indication: PRODUCT USED FOR UNKNOWN INDICATION
  6. WARFARIN (WARFARIN) [Suspect]
     Active Substance: WARFARIN
     Indication: PRODUCT USED FOR UNKNOWN INDICATION
     Dosage: ACCORDING TO THE ^INTERNATIONAL NORMALIZED RATIO^ (INR))
  7. MOXONIDINE (MOXONIDINE) [Suspect]
     Active Substance: MOXONIDINE
     Indication: PRODUCT USED FOR UNKNOWN INDICATION
  8. BISOPROLOL FUMARATE AND HYDROCHLOROTHIAZIDE [Suspect]
     Active Substance: BISOPROLOL FUMARATE\HYDROCHLOROTHIAZIDE
     Indication: PRODUCT USED FOR UNKNOWN INDICATION
  9. GLIQUIDONE [Suspect]
     Active Substance: GLIQUIDONE
     Indication: PRODUCT USED FOR UNKNOWN INDICATION

REACTIONS (25)
  - Dyspnoea [None]
  - Vomiting [None]
  - Leukocytosis [None]
  - Cardiomegaly [None]
  - Hypotension [None]
  - Blood pressure increased [None]
  - Ascites [None]
  - Fatigue [None]
  - Dehydration [None]
  - Metabolic acidosis [None]
  - Amylase increased [None]
  - Lipase increased [None]
  - Haemodynamic instability [None]
  - Diarrhoea [None]
  - Anuria [None]
  - Abdominal pain upper [None]
  - Respiratory depression [None]
  - Acute kidney injury [None]
  - Troponin increased [None]
  - Decreased appetite [None]
  - Nausea [None]
  - Hyperventilation [None]
  - Atrial fibrillation [None]
  - Tachypnoea [None]
  - Toxicity to various agents [None]
